FAERS Safety Report 11741666 (Version 1)
Quarter: 2015Q4

REPORT INFORMATION
  Report Type: Spontaneous
  Country: US (occurrence: None)
  Receive Date: 20151113
  Receipt Date: 20151113
  Transmission Date: 20160304
  Serious: No
  Sender: FDA-Public Use
  Company Number: None

PATIENT

DRUGS (1)
  1. TRIMETHOPRIM SULFATE AND POLYMYXIN B SULFATE [Suspect]
     Active Substance: POLYMYXIN B SULFATE\TRIMETHOPRIM SULFATE
     Indication: EYE INFECTION

REACTIONS (2)
  - Product container issue [None]
  - Incorrect product storage [None]

NARRATIVE: CASE EVENT DATE: 20151111
